FAERS Safety Report 7803863-2 (Version None)
Quarter: 2011Q4

REPORT INFORMATION
  Report Type: 
  Country: None (occurrence: None)
  Receive Date: 20111010
  Receipt Date: 20111004
  Transmission Date: 20120403
  Serious: Yes (Hospitalization, Congenital Anomaly, Other)
  Sender: FDA-Public Use
  Company Number: US-PFIZER INC-2011159667

PATIENT
  Sex: Male
  Weight: 4 kg

DRUGS (9)
  1. ZOLOFT [Suspect]
     Indication: DEPRESSION
     Dosage: 100 MG, UNK
     Route: 064
     Dates: start: 20080201
  2. FERROUS GLUCONATE [Concomitant]
     Dosage: 325 MG, 2X/DAY
     Route: 064
     Dates: start: 20080111
  3. GLUCOPHAGE [Concomitant]
     Dosage: 859 MG, 2X/DAY
     Route: 064
     Dates: start: 20080118
  4. METFORMIN [Concomitant]
     Dosage: 850 MG, 2X/DAY
     Route: 064
     Dates: end: 20080309
  5. CLEOCIN HYDROCHLORIDE [Concomitant]
     Dosage: 2% 5GM AT EVERY BEDTIME
     Route: 064
     Dates: start: 20070824
  6. PRENATAL VITAMINS [Concomitant]
     Dosage: 1 TABLET
     Route: 064
  7. ZOLOFT [Suspect]
     Indication: ANXIETY
     Dosage: 50 MG, DAILY
     Route: 064
     Dates: start: 20080303
  8. ZOFRAN [Concomitant]
     Dosage: 8MG HALF TO ONE TABLET THREE TIMES A DAY
     Route: 064
     Dates: start: 20080122
  9. METFORMIN [Concomitant]
     Dosage: 500 MG, UNK
     Route: 064
     Dates: start: 20080118

REACTIONS (4)
  - MATERNAL EXPOSURE DURING PREGNANCY [None]
  - ADENOIDAL HYPERTROPHY [None]
  - TALIPES [None]
  - MATERNAL DRUGS AFFECTING FOETUS [None]
